FAERS Safety Report 8756230 (Version 14)
Quarter: 2013Q2

REPORT INFORMATION
  Report Type: Spontaneous
  Country: US (occurrence: US)
  Receive Date: 20120828
  Receipt Date: 20130618
  Transmission Date: 20140414
  Serious: Yes (Death, Hospitalization, Other)
  Sender: FDA-Public Use
  Company Number: PHEH2006US015704

PATIENT
  Sex: Female
  Weight: 69.1 kg

DRUGS (46)
  1. ZOMETA [Suspect]
     Indication: PROPHYLAXIS
     Dosage: 4 MG, QMO
     Dates: start: 20031111, end: 20060418
  2. AREDIA [Suspect]
     Dosage: 90 MG, QMO
     Route: 042
     Dates: end: 2003
  3. IMODIUM [Concomitant]
  4. PRILOSEC [Concomitant]
  5. SPIRIVA [Concomitant]
  6. TEGELINE [Concomitant]
  7. PILOCARPINE [Concomitant]
  8. BENZONATATE [Concomitant]
  9. ACYCLOVIR [Concomitant]
  10. DECADRAN [Concomitant]
  11. THALIDOMIDE [Concomitant]
  12. REVLIMID [Concomitant]
  13. MULTIVITAMINS [Concomitant]
  14. VINCRISTINE [Concomitant]
  15. ADRIAMYCIN [Concomitant]
  16. AMOXICILLIN [Concomitant]
  17. PREDNISONE [Concomitant]
  18. QUININE [Concomitant]
  19. ZOFRAN [Concomitant]
     Dosage: 4 MG, PRN
  20. NEXIUM [Concomitant]
  21. DIFLUCAN [Concomitant]
  22. TOBRAMYCIN [Concomitant]
  23. ZITHROMAX ^HEINRICH MACK^ [Concomitant]
  24. IRON [Concomitant]
  25. SEREVENT [Concomitant]
  26. ZANTAC [Concomitant]
  27. SYMBICORT TURBUHALER ^DRACO^ [Concomitant]
     Dosage: 4.5 MG, QD
  28. ARIXTRA [Concomitant]
  29. PROVENTIL [Concomitant]
  30. IMURAN [Concomitant]
     Dosage: 25 MG, QD
  31. ASCORBIC ACID [Concomitant]
  32. ALBUTEROL [Concomitant]
  33. VELCADE [Concomitant]
  34. OLANZAPINE [Concomitant]
  35. ATIVAN [Concomitant]
  36. SCOPOLAMINE [Concomitant]
     Dosage: 1.5 MG, UNK
  37. SALAGEN [Concomitant]
     Dosage: 5 MG, TID
  38. NYSTATIN [Concomitant]
     Dosage: UNK UKN, 4 TIMES DAILY
  39. COUMADINE [Concomitant]
  40. ACTOPLUS [Concomitant]
  41. LOVENOX [Concomitant]
  42. LORTAB [Concomitant]
  43. PYRIDIUM [Concomitant]
  44. KEFLEX                                  /UNK/ [Concomitant]
  45. COMPAZINE [Concomitant]
  46. DARVOCET-N [Concomitant]

REACTIONS (149)
  - Plasma cell myeloma [Fatal]
  - Malignant neoplasm progression [Fatal]
  - Osteitis [Fatal]
  - Anaemia of malignant disease [Fatal]
  - Bone lesion [Fatal]
  - Pneumothorax [Unknown]
  - Streptococcal sepsis [Recovering/Resolving]
  - Inflammation [Unknown]
  - Infective tenosynovitis [Unknown]
  - Osteonecrosis of jaw [Recovered/Resolved]
  - Chest pain [Unknown]
  - Abdominal pain [Unknown]
  - Arthritis bacterial [Unknown]
  - Dyspnoea exertional [Unknown]
  - Injury [Unknown]
  - Pain [Unknown]
  - Anxiety [Unknown]
  - Pelvic fracture [Unknown]
  - Nerve root compression [Unknown]
  - Deep vein thrombosis [Unknown]
  - Liver disorder [Unknown]
  - Hepatic function abnormal [Unknown]
  - Atelectasis [Unknown]
  - Transaminases increased [Unknown]
  - Upper respiratory tract infection [Unknown]
  - Urinary tract infection [Unknown]
  - Hypokalaemia [Unknown]
  - Chronic obstructive pulmonary disease [Unknown]
  - Lymphadenopathy mediastinal [Unknown]
  - Emphysema [Unknown]
  - Adrenal suppression [Unknown]
  - Adrenal insufficiency [Unknown]
  - Bronchiectasis [Unknown]
  - Arthropathy [Unknown]
  - Pneumonia [Unknown]
  - Intervertebral disc degeneration [Unknown]
  - Osteoarthritis [Unknown]
  - Sarcoidosis [Not Recovered/Not Resolved]
  - Bullous lung disease [Unknown]
  - Pulmonary fibrosis [Unknown]
  - Pulmonary mass [Unknown]
  - Interstitial lung disease [Unknown]
  - Vascular calcification [Unknown]
  - Intervertebral disc protrusion [Unknown]
  - Limb discomfort [Unknown]
  - Walking aid user [Unknown]
  - Rash [Unknown]
  - Renal failure [Unknown]
  - Spinal osteoarthritis [Unknown]
  - Lung disorder [Unknown]
  - Superinfection [Unknown]
  - Staphylococcal infection [Unknown]
  - Pneumonitis [Unknown]
  - Osteolysis [Unknown]
  - Gastrooesophageal reflux disease [Unknown]
  - Bacterial diarrhoea [Unknown]
  - Fall [Unknown]
  - Oedema peripheral [Unknown]
  - Muscle spasms [Unknown]
  - Asthenia [Unknown]
  - Decreased appetite [Unknown]
  - Dehydration [Unknown]
  - Joint swelling [Unknown]
  - Eating disorder [Unknown]
  - Hyperglycaemia [Unknown]
  - Bronchitis [Unknown]
  - Osteopenia [Unknown]
  - Hyperkalaemia [Unknown]
  - Anaemia [Unknown]
  - Lumbar spinal stenosis [Recovering/Resolving]
  - Hepatic lesion [Unknown]
  - Asthma [Unknown]
  - Pleural effusion [Unknown]
  - Herpes zoster [Unknown]
  - Blepharitis [Unknown]
  - Carotid arteriosclerosis [Unknown]
  - Diabetes mellitus [Unknown]
  - Pathological fracture [Recovering/Resolving]
  - Hypotension [Unknown]
  - Blister [Not Recovered/Not Resolved]
  - Vision blurred [Not Recovered/Not Resolved]
  - Eye pain [Unknown]
  - Rotator cuff syndrome [Unknown]
  - Hyperaemia [Unknown]
  - Ophthalmic herpes zoster [Unknown]
  - Conjunctivitis [Unknown]
  - Aortic valve calcification [Unknown]
  - Ascites [Unknown]
  - Renal cyst [Unknown]
  - Road traffic accident [Unknown]
  - Pain in extremity [Unknown]
  - Sinus tachycardia [Unknown]
  - Dilatation ventricular [Unknown]
  - Obstructive airways disorder [Unknown]
  - Abdominal lymphadenopathy [Unknown]
  - Neuralgia [Unknown]
  - Metastases to spine [Unknown]
  - Gastrointestinal haemorrhage [Unknown]
  - Haematemesis [Unknown]
  - Hypertension [Unknown]
  - Vertebral foraminal stenosis [Unknown]
  - Gastric mucosal lesion [Unknown]
  - Gastric haemorrhage [Unknown]
  - Haematochezia [Unknown]
  - Renal cancer [Unknown]
  - Foreign body [Unknown]
  - Splenomegaly [Unknown]
  - Hypercalcaemia [Unknown]
  - Osteoporosis [Unknown]
  - Ligament sprain [Unknown]
  - Haematuria [Unknown]
  - Mucosal inflammation [Unknown]
  - Motor dysfunction [Unknown]
  - Haemangioma of liver [Unknown]
  - Pulmonary granuloma [Unknown]
  - Tenderness [Unknown]
  - Soft tissue disorder [Unknown]
  - Thrombosis [Unknown]
  - Metastases to bone [Unknown]
  - Dizziness [Unknown]
  - Cerebrovascular disorder [Unknown]
  - Carotid artery disease [Unknown]
  - Sinus disorder [Unknown]
  - Exophthalmos [Unknown]
  - Sinusitis [Unknown]
  - Tendon disorder [Unknown]
  - Muscle oedema [Unknown]
  - Hypertrophy [Unknown]
  - Ligament disorder [Unknown]
  - Dysphagia [Unknown]
  - Dry skin [Unknown]
  - Pigmentation disorder [Unknown]
  - Muscular weakness [Unknown]
  - Hypomania [Unknown]
  - Gait disturbance [Unknown]
  - Syncope [Unknown]
  - Depression [Unknown]
  - Ageusia [Unknown]
  - Hypoaesthesia [Unknown]
  - Gastritis erosive [Unknown]
  - Melaena [Unknown]
  - Tachypnoea [Unknown]
  - Phlebolith [Unknown]
  - Dysphonia [Unknown]
  - Exposed bone in jaw [Unknown]
  - Neuropathy peripheral [Unknown]
  - Lymph node calcification [Unknown]
  - Bronchospasm [Unknown]
  - Spondylolisthesis [Unknown]
